FAERS Safety Report 13957183 (Version 6)
Quarter: 2017Q4

REPORT INFORMATION
  Report Type: Spontaneous
  Country: US (occurrence: US)
  Receive Date: 20170911
  Receipt Date: 20171018
  Transmission Date: 20180320
  Serious: No
  Sender: FDA-Public Use
  Company Number: US-PFIZER INC-2017081015

PATIENT
  Age: 13 Year
  Sex: Male
  Weight: 49.9 kg

DRUGS (4)
  1. GENOTROPIN [Suspect]
     Active Substance: SOMATROPIN
     Dosage: UNK, DAILY UNK (INJECT 2 MG UNDER THE SKIN ALTERNATING WITH 2.2MG)
     Dates: start: 2015
  2. GENOTROPIN [Suspect]
     Active Substance: SOMATROPIN
     Dosage: 2.1 MG, DAILY
     Route: 058
     Dates: start: 20141116
  3. GENOTROPIN [Suspect]
     Active Substance: SOMATROPIN
     Indication: GROWTH HORMONE DEFICIENCY
     Dosage: 1.9 MG, DAILY
     Dates: start: 20141116
  4. GENOTROPIN [Suspect]
     Active Substance: SOMATROPIN
     Indication: HYPOPITUITARISM
     Dosage: 1.5 MG, UNK

REACTIONS (6)
  - Drug dispensing error [Unknown]
  - Weight increased [Recovering/Resolving]
  - Bone disorder [Unknown]
  - Device issue [Unknown]
  - Drug ineffective [Unknown]
  - Drug dose omission [Not Recovered/Not Resolved]

NARRATIVE: CASE EVENT DATE: 20170204
